FAERS Safety Report 5910727-8 (Version None)
Quarter: 2008Q4

REPORT INFORMATION
  Report Type: 
  Country: None (occurrence: None)
  Receive Date: 20081007
  Receipt Date: 20080403
  Transmission Date: 20090506
  Serious: No
  Sender: FDA-Public Use
  Company Number: US-ASTRAZENECA-2008UW06772

PATIENT
  Age: 77 Year
  Sex: Female
  Weight: 83.9 kg

DRUGS (7)
  1. ARIMIDEX [Suspect]
     Route: 048
  2. NORVASC [Concomitant]
  3. BENICAR [Concomitant]
  4. PROFANONE [Concomitant]
  5. WARFARIN SODIUM [Concomitant]
  6. MULTI-VITAMIN [Concomitant]
  7. TOPROL-XL [Concomitant]
     Route: 048

REACTIONS (2)
  - NAUSEA [None]
  - PAIN [None]
